FAERS Safety Report 20649957 (Version 1)
Quarter: 2022Q1

REPORT INFORMATION
  Report Type: Spontaneous
  Country: US (occurrence: US)
  Receive Date: 20220329
  Receipt Date: 20220329
  Transmission Date: 20220423
  Serious: No
  Sender: FDA-Public Use
  Company Number: US-BRISTOL-MYERS SQUIBB COMPANY-2022-010259

PATIENT
  Age: 78 Year
  Sex: Male

DRUGS (1)
  1. ONUREG [Suspect]
     Active Substance: AZACITIDINE
     Indication: Product used for unknown indication
     Dosage: DOSE : UNAVAILABLE;     FREQ : TAKE 1 TABLET BY MOUTH ONCE DAILY ON DAYS 1-14 OF A 28 DAY CYCLE
     Route: 048

REACTIONS (1)
  - Nausea [Unknown]
